FAERS Safety Report 8829583 (Version 3)
Quarter: 2012Q4

REPORT INFORMATION
  Report Type: 
  Country: PR (occurrence: PR)
  Receive Date: 20121008
  Receipt Date: 20121213
  Transmission Date: 20130627
  Serious: Yes (Hospitalization)
  Sender: FDA-Public Use
  Company Number: PR-ABBOTT-12P-131-0991214-00

PATIENT
  Age: 53 Year
  Sex: Female
  Weight: 59.02 kg

DRUGS (5)
  1. HUMIRA [Suspect]
     Indication: CROHN^S DISEASE
     Route: 058
     Dates: start: 201207, end: 201209
  2. PENTASA [Concomitant]
     Indication: CROHN^S DISEASE
     Route: 048
     Dates: start: 201202, end: 201209
  3. IMURAN [Concomitant]
     Indication: CROHN^S DISEASE
     Dosage: Daily
     Route: 048
     Dates: start: 201202
  4. ENTOCORT [Concomitant]
     Indication: CROHN^S DISEASE
     Dosage: Daily
     Route: 048
     Dates: start: 201202, end: 201209
  5. PROBIOTIC [Concomitant]
     Indication: CROHN^S DISEASE
     Dosage: Daily
     Route: 048
     Dates: start: 201202, end: 201209

REACTIONS (2)
  - Gastrointestinal inflammation [Recovering/Resolving]
  - Vomiting [Recovered/Resolved]
